FAERS Safety Report 18609433 (Version 1)
Quarter: 2020Q4

REPORT INFORMATION
  Report Type: Spontaneous
  Country: US (occurrence: US)
  Receive Date: 20201214
  Receipt Date: 20201214
  Transmission Date: 20210114
  Serious: Yes (Hospitalization, Other)
  Sender: FDA-Public Use
  Company Number: US-AUROBINDO-AUR-APL-2020-060096

PATIENT
  Age: 13 Month
  Sex: Male
  Weight: 9.7 kg

DRUGS (3)
  1. BUPIVACAINE HYDROCHLORIDE. [Suspect]
     Active Substance: BUPIVACAINE HYDROCHLORIDE
     Indication: SPINAL ANAESTHESIA
     Dosage: 7.5 MILLIGRAM 1 TOTAL (0.5 %)
     Route: 008
  2. EPINEPHRINE. [Suspect]
     Active Substance: EPINEPHRINE
     Indication: SPINAL ANAESTHESIA
     Dosage: 1 DOSAGE FORM 1 TOTAL
     Route: 008
  3. MIDAZOLAM. [Concomitant]
     Active Substance: MIDAZOLAM
     Indication: PREMEDICATION
     Dosage: 7 MILLIGRAM 1 TOTAL
     Route: 048

REACTIONS (2)
  - Areflexia [Recovered/Resolved]
  - Delayed recovery from anaesthesia [Recovered/Resolved]
